FAERS Safety Report 7037156-0 (Version None)
Quarter: 2010Q4

REPORT INFORMATION
  Report Type: 
  Country: None (occurrence: None)
  Receive Date: 20101011
  Receipt Date: 20101001
  Transmission Date: 20110411
  Serious: Yes (Other)
  Sender: FDA-Public Use
  Company Number: NL-NOVOPROD-314033

PATIENT
  Sex: Female
  Weight: 163 kg

DRUGS (9)
  1. VICTOZA [Suspect]
     Indication: TYPE 2 DIABETES MELLITUS
  2. METFORMIN [Concomitant]
     Dosage: 1000 MG, TID
     Route: 048
     Dates: start: 19960101
  3. FOLIC ACID [Concomitant]
     Dosage: 5 MG, QD
     Dates: start: 20100101
  4. GLICLAZIDE [Concomitant]
     Dosage: 80 MG, TID
     Route: 048
     Dates: end: 19960101
  5. HYDROCHLOROTHIAZIDE [Concomitant]
     Dosage: 25 MG, QD
     Route: 048
     Dates: start: 19960101
  6. TELMISARTAN [Concomitant]
     Dosage: 80 MG, QD
     Dates: start: 20091218
  7. BISOPROLOL [Concomitant]
     Dosage: 5 MG, QD
     Route: 048
     Dates: start: 19960101
  8. ASASANTIN                          /00042901/ [Concomitant]
     Dosage: 225 MG, BID
     Route: 048
     Dates: start: 20080201
  9. ROSUVASTATIN [Concomitant]
     Dosage: 10 MG, QD
     Route: 048
     Dates: start: 20090201

REACTIONS (1)
  - RENAL CELL CARCINOMA [None]
